FAERS Safety Report 19656949 (Version 4)
Quarter: 2021Q4

REPORT INFORMATION
  Report Type: Spontaneous
  Country: BE (occurrence: BE)
  Receive Date: 20210804
  Receipt Date: 20211004
  Transmission Date: 20220303
  Serious: Yes (Other)
  Sender: FDA-Public Use
  Company Number: BE-ELI_LILLY_AND_COMPANY-BE202107010805

PATIENT
  Age: 35 Year

DRUGS (1)
  1. TALTZ [Suspect]
     Active Substance: IXEKIZUMAB
     Indication: Psoriasis
     Dosage: 80 MG, 4 WEEKLY
     Route: 065
     Dates: start: 2017

REACTIONS (6)
  - Otitis media acute [Recovering/Resolving]
  - Mastoiditis [Recovering/Resolving]
  - Facial paralysis [Unknown]
  - Rhinitis [Unknown]
  - Pharyngitis [Unknown]
  - Upper respiratory tract infection [Unknown]

NARRATIVE: CASE EVENT DATE: 20210401
